FAERS Safety Report 7956861-2 (Version None)
Quarter: 2011Q4

REPORT INFORMATION
  Report Type: 
  Country: None (occurrence: None)
  Receive Date: 20111205
  Receipt Date: 20111122
  Transmission Date: 20120403
  Serious: Yes (Hospitalization)
  Sender: FDA-Public Use
  Company Number: JP-SANOFI-AVENTIS-2011SA019188

PATIENT
  Age: 56 Year
  Sex: Male

DRUGS (8)
  1. FLUOROURACIL [Suspect]
     Dosage: DOSE: 400 MG/M2 2400 MG/M2
     Route: 042
     Dates: start: 20110202
  2. LEVOLEUCOVORIN CALCIUM [Suspect]
     Route: 041
     Dates: start: 20110216, end: 20110301
  3. FLUOROURACIL [Suspect]
     Dosage: DOSE: 400 MG/M2 2400 MG/M2
     Route: 042
     Dates: start: 20110216, end: 20110301
  4. FLUOROURACIL [Suspect]
     Dosage: DOSE: 400 MG/M2 2400 MG/M2
     Route: 040
     Dates: start: 20110216, end: 20110301
  5. OXALIPLATIN [Suspect]
     Indication: LARGE INTESTINE CARCINOMA
     Route: 041
     Dates: start: 20110202
  6. LEVOLEUCOVORIN CALCIUM [Suspect]
     Indication: LARGE INTESTINE CARCINOMA
     Route: 041
     Dates: start: 20110202
  7. FLUOROURACIL [Suspect]
     Indication: LARGE INTESTINE CARCINOMA
     Dosage: DOSE: 400 MG/M2 2400 MG/M2
     Route: 040
     Dates: start: 20110202
  8. OXALIPLATIN [Suspect]
     Route: 041
     Dates: start: 20110202, end: 20110301

REACTIONS (1)
  - DRUG ERUPTION [None]
